FAERS Safety Report 13201820 (Version 1)
Quarter: 2017Q1

REPORT INFORMATION
  Report Type: Spontaneous
  Country: JP (occurrence: JP)
  Receive Date: 20170209
  Receipt Date: 20170209
  Transmission Date: 20170428
  Serious: Yes (Hospitalization, Other)
  Sender: FDA-Public Use
  Company Number: JP-ROCHE-1863449

PATIENT
  Age: 53 Year
  Sex: Female

DRUGS (10)
  1. ACTEMRA [Suspect]
     Active Substance: TOCILIZUMAB
     Indication: RHEUMATOID ARTHRITIS
     Route: 041
     Dates: start: 20160418, end: 20160519
  2. ACTEMRA [Suspect]
     Active Substance: TOCILIZUMAB
     Indication: RHEUMATOID ARTHRITIS
     Route: 058
     Dates: start: 20160616, end: 20161117
  3. FOLIAMIN [Concomitant]
     Active Substance: FOLIC ACID
     Dosage: DOSAGE IS UNCERTAIN.
     Route: 048
  4. AZULFIDINE EN-TABS [Suspect]
     Active Substance: SULFASALAZINE
     Indication: PRODUCT USED FOR UNKNOWN INDICATION
     Dosage: THE FRACTIONATION DOSE FREQUENCY IS UNCERTAIN. ?DOSE INTERVAL UNCERTAINTY
     Route: 065
     Dates: start: 200901
  5. RHEUMATREX [Suspect]
     Active Substance: METHOTREXATE SODIUM
     Indication: PRODUCT USED FOR UNKNOWN INDICATION
     Dosage: 4-8MG/W AND FRACTIONATION DOSE UNCERTAIN FREQUENCY
     Route: 065
     Dates: start: 201006
  6. PARIET [Concomitant]
     Active Substance: RABEPRAZOLE SODIUM
     Indication: PROPHYLAXIS
     Route: 048
     Dates: start: 20100325
  7. CINAL [Concomitant]
     Active Substance: ASCORBIC ACID\CALCIUM PANTOTHENATE
     Indication: SYSTEMIC SCLERODERMA
     Route: 048
     Dates: start: 20110705
  8. FERROUS CITRATE [Concomitant]
     Active Substance: FERROUS CITRATE
     Indication: IRON DEFICIENCY ANAEMIA
     Route: 048
     Dates: start: 20110705
  9. JUVELA N [Concomitant]
     Active Substance: TOCOPHERYL NICOTINATE, D-.ALPHA.
     Indication: SYSTEMIC SCLERODERMA
     Route: 048
     Dates: start: 20100330
  10. PREDONINE [Suspect]
     Active Substance: PREDNISOLONE
     Indication: PRODUCT USED FOR UNKNOWN INDICATION
     Dosage: THE FRACTIONATION DOSE FREQUENCY IS UNCERTAIN. ?DOSE INTERVAL UNCERTAINTY
     Route: 065
     Dates: start: 20100325

REACTIONS (4)
  - Osteomyelitis [Recovering/Resolving]
  - Impaired healing [Unknown]
  - Cellulitis [Recovering/Resolving]
  - Ankle fracture [Unknown]

NARRATIVE: CASE EVENT DATE: 20161121
